FAERS Safety Report 5913725-3 (Version None)
Quarter: 2008Q4

REPORT INFORMATION
  Report Type: 
  Country: None (occurrence: None)
  Receive Date: 20081007
  Receipt Date: 20080923
  Transmission Date: 20090506
  Serious: Yes (Other)
  Sender: FDA-Public Use
  Company Number: SIM20080026

PATIENT
  Sex: Male

DRUGS (2)
  1. SIMVASTATIN [Suspect]
     Indication: ARTERIOSCLEROSIS
     Dosage: 10 MG, DAILY, PER ORAL
     Route: 048
     Dates: start: 20080301
  2. NUMEROUS UNSPECIFIED MEDICATIONS [Concomitant]

REACTIONS (1)
  - PANCYTOPENIA [None]
